FAERS Safety Report 19645711 (Version 1)
Quarter: 2021Q3

REPORT INFORMATION
  Report Type: Report from Study
  Country: FR (occurrence: FR)
  Receive Date: 20210802
  Receipt Date: 20210802
  Transmission Date: 20211014
  Serious: Yes (Hospitalization, Other)
  Sender: FDA-Public Use
  Company Number: FR-TAKEDA-FR201911933

PATIENT
  Age: 72 Year
  Sex: Male
  Weight: 49 kg

DRUGS (23)
  1. TEDUGLUTIDE [Suspect]
     Active Substance: TEDUGLUTIDE
     Dosage: 2.25 MILLIGRAM, TED DAILY DOSE 0.05 MG KG, TED DOSES PER WEEK 7
     Route: 065
     Dates: start: 20160803, end: 20160904
  2. TEDUGLUTIDE [Suspect]
     Active Substance: TEDUGLUTIDE
     Dosage: 2.4 MILLIGRAM, TED DAILY DOSE 0.05 MG KG, TED DOSES PER WEEK 7
     Dates: start: 20160905, end: 20180220
  3. TEDUGLUTIDE [Suspect]
     Active Substance: TEDUGLUTIDE
     Dosage: 1.2 MILLIGRAM, TED DAILY DOSE 0.02 MG KG, TED DOSES PER WEEK 7
     Route: 065
     Dates: start: 20160720, end: 20160820
  4. VANCOMYCINE [Concomitant]
     Active Substance: VANCOMYCIN
     Indication: DEVICE RELATED SEPSIS
  5. TEDUGLUTIDE [Suspect]
     Active Substance: TEDUGLUTIDE
     Indication: SHORT-BOWEL SYNDROME
     Dosage: 2.4 MILLIGRAM, TED DAILY DOSE 0.05 MG KG, TED DOSES PER WEEK 7
     Route: 065
     Dates: start: 20160309, end: 20160719
  6. TEDUGLUTIDE [Suspect]
     Active Substance: TEDUGLUTIDE
     Indication: SHORT-BOWEL SYNDROME
     Dosage: 2.4 MILLIGRAM, TED DAILY DOSE 0.05 MG KG, TED DOSES PER WEEK 7
     Route: 065
     Dates: start: 20160309, end: 20160719
  7. TEDUGLUTIDE [Suspect]
     Active Substance: TEDUGLUTIDE
     Dosage: 1.2 MILLIGRAM, TED DAILY DOSE 0.02 MG KG, TED DOSES PER WEEK 7
     Route: 065
     Dates: start: 20160720, end: 20160820
  8. TEDUGLUTIDE [Suspect]
     Active Substance: TEDUGLUTIDE
     Dosage: 2.25 MILLIGRAM, TED DAILY DOSE 0.05 MG KG, TED DOSES PER WEEK 7
     Route: 065
     Dates: start: 20160803, end: 20160904
  9. TEDUGLUTIDE [Suspect]
     Active Substance: TEDUGLUTIDE
     Dosage: 2.4 MILLIGRAM, TED DAILY DOSE 0.05 MG KG, TED DOSES PER WEEK 7
     Dates: start: 20160905, end: 20180220
  10. TEDUGLUTIDE [Suspect]
     Active Substance: TEDUGLUTIDE
     Dosage: 2.4 MILLIGRAM, TED DAILY DOSE 0.05 MG KG, TED DOSES PER WEEK 7
     Route: 065
     Dates: start: 20180226
  11. TEDUGLUTIDE [Suspect]
     Active Substance: TEDUGLUTIDE
     Dosage: 2.25 MILLIGRAM, TED DAILY DOSE 0.05 MG KG, TED DOSES PER WEEK 7
     Route: 065
     Dates: start: 20160803, end: 20160904
  12. TEDUGLUTIDE [Suspect]
     Active Substance: TEDUGLUTIDE
     Dosage: 2.4 MILLIGRAM, TED DAILY DOSE 0.05 MG KG, TED DOSES PER WEEK 7
     Route: 065
     Dates: start: 20180226
  13. TEDUGLUTIDE [Suspect]
     Active Substance: TEDUGLUTIDE
     Indication: SHORT-BOWEL SYNDROME
     Dosage: 2.4 MILLIGRAM, TED DAILY DOSE 0.05 MG KG, TED DOSES PER WEEK 7
     Route: 065
     Dates: start: 20160309, end: 20160719
  14. TEDUGLUTIDE [Suspect]
     Active Substance: TEDUGLUTIDE
     Dosage: 1.2 MILLIGRAM, TED DAILY DOSE 0.02 MG KG, TED DOSES PER WEEK 7
     Route: 065
     Dates: start: 20160720, end: 20160820
  15. TEDUGLUTIDE [Suspect]
     Active Substance: TEDUGLUTIDE
     Dosage: 2.4 MILLIGRAM, TED DAILY DOSE 0.05 MG KG, TED DOSES PER WEEK 7
     Dates: start: 20160905, end: 20180220
  16. TEDUGLUTIDE [Suspect]
     Active Substance: TEDUGLUTIDE
     Dosage: 2.4 MILLIGRAM, TED DAILY DOSE 0.05 MG KG, TED DOSES PER WEEK 7
     Route: 065
     Dates: start: 20180226
  17. ZYVOXID [Concomitant]
     Active Substance: LINEZOLID
     Indication: DEVICE RELATED SEPSIS
  18. TEDUGLUTIDE [Suspect]
     Active Substance: TEDUGLUTIDE
     Dosage: 2.4 MILLIGRAM, TED DAILY DOSE 0.05 MG KG, TED DOSES PER WEEK 7
     Dates: start: 20160905, end: 20180220
  19. TEDUGLUTIDE [Suspect]
     Active Substance: TEDUGLUTIDE
     Indication: SHORT-BOWEL SYNDROME
     Dosage: 2.4 MILLIGRAM, TED DAILY DOSE 0.05 MG KG, TED DOSES PER WEEK 7
     Route: 065
     Dates: start: 20160309, end: 20160719
  20. TEDUGLUTIDE [Suspect]
     Active Substance: TEDUGLUTIDE
     Dosage: 1.2 MILLIGRAM, TED DAILY DOSE 0.02 MG KG, TED DOSES PER WEEK 7
     Route: 065
     Dates: start: 20160720, end: 20160820
  21. TEDUGLUTIDE [Suspect]
     Active Substance: TEDUGLUTIDE
     Dosage: 2.25 MILLIGRAM, TED DAILY DOSE 0.05 MG KG, TED DOSES PER WEEK 7
     Route: 065
     Dates: start: 20160803, end: 20160904
  22. TEDUGLUTIDE [Suspect]
     Active Substance: TEDUGLUTIDE
     Dosage: 2.4 MILLIGRAM, TED DAILY DOSE 0.05 MG KG, TED DOSES PER WEEK 7
     Route: 065
     Dates: start: 20180226
  23. AUGMENTIN [Concomitant]
     Active Substance: AMOXICILLIN\CLAVULANATE POTASSIUM
     Indication: DEVICE RELATED SEPSIS

REACTIONS (1)
  - Device related sepsis [Recovered/Resolved]

NARRATIVE: CASE EVENT DATE: 20190406
